FAERS Safety Report 21961655 (Version 1)
Quarter: 2023Q1

REPORT INFORMATION
  Report Type: Other
  Country: None (occurrence: PT)
  Receive Date: 20230207
  Receipt Date: 20230207
  Transmission Date: 20230417
  Serious: Yes (Life-Threatening, Hospitalization, Other)
  Sender: FDA-Public Use
  Company Number: PT-Spectra Medical Devices, LLC-2137597

PATIENT
  Age: 69 Year
  Sex: Female
  Weight: 55 kg

DRUGS (1)
  1. LIDOCAINE HYDROCHLORIDE ANHYDROUS [Suspect]
     Active Substance: LIDOCAINE HYDROCHLORIDE ANHYDROUS
     Indication: Local anaesthesia
     Route: 065

REACTIONS (9)
  - Altered state of consciousness [Recovered/Resolved]
  - Psychomotor hyperactivity [Recovered/Resolved]
  - Tachycardia [Recovered/Resolved]
  - Hypertension [Recovered/Resolved]
  - Supraventricular extrasystoles [Recovered/Resolved]
  - Ventricular extrasystoles [Recovered/Resolved]
  - Hypotension [Recovered/Resolved]
  - Local anaesthetic systemic toxicity [Recovered/Resolved]
  - Overdose [Recovered/Resolved]
